FAERS Safety Report 16676623 (Version 1)
Quarter: 2019Q3

REPORT INFORMATION
  Report Type: Spontaneous
  Country: US (occurrence: US)
  Receive Date: 20190807
  Receipt Date: 20190807
  Transmission Date: 20191004
  Serious: Yes (Hospitalization, Other)
  Sender: FDA-Public Use
  Company Number: US-B.I. PHARMACEUTICALS,INC./RIDGEFIELD-2019-US-001050

PATIENT
  Age: 88 Year
  Sex: Male

DRUGS (1)
  1. SPIRIVA [Suspect]
     Active Substance: TIOTROPIUM BROMIDE MONOHYDRATE
     Indication: PRODUCT USED FOR UNKNOWN INDICATION
     Dosage: 1 CAPSULE DAILY
     Route: 065

REACTIONS (7)
  - Cholecystectomy [Unknown]
  - Pollakiuria [Recovered/Resolved]
  - Dizziness [Recovered/Resolved]
  - Cardiac murmur [Unknown]
  - Peripheral swelling [Recovered/Resolved]
  - Venous injury [Unknown]
  - Weight decreased [Not Recovered/Not Resolved]

NARRATIVE: CASE EVENT DATE: 201107
